FAERS Safety Report 7983882-6 (Version None)
Quarter: 2011Q4

REPORT INFORMATION
  Report Type: 
  Country: None (occurrence: None)
  Receive Date: 20111216
  Receipt Date: 20111208
  Transmission Date: 20120403
  Serious: No
  Sender: FDA-Public Use
  Company Number: US-BIOGENIDEC-2011BI046829

PATIENT
  Sex: Male

DRUGS (3)
  1. TYSABRI [Suspect]
     Indication: MULTIPLE SCLEROSIS
     Route: 042
     Dates: start: 20070503, end: 20110816
  2. AVONEX [Concomitant]
     Route: 030
  3. AVONEX [Concomitant]
     Indication: MULTIPLE SCLEROSIS
     Route: 030
     Dates: start: 19990101

REACTIONS (9)
  - BALANCE DISORDER [None]
  - MUSCLE ATROPHY [None]
  - VISUAL ACUITY REDUCED [None]
  - FALL [None]
  - ASTHENIA [None]
  - MEMORY IMPAIRMENT [None]
  - CONTUSION [None]
  - GAIT DISTURBANCE [None]
  - FATIGUE [None]
